FAERS Safety Report 5040898-X (Version None)
Quarter: 2006Q2

REPORT INFORMATION
  Report Type: 
  Country: None (occurrence: None)
  Receive Date: 20060630
  Receipt Date: 20060630
  Transmission Date: 20061013
  Serious: Yes (Hospitalization)
  Sender: FDA-Public Use
  Company Number: None

PATIENT
  Sex: Female
  Weight: 99.7913 kg

DRUGS (2)
  1. CEFAZOLIN [Suspect]
     Indication: BREAST COSMETIC SURGERY
     Dosage: 500 MG 2 TIMES PER DAY IV DAYS INTRAVENOUS DRIP
     Route: 041
     Dates: start: 20051019, end: 20051020
  2. CEFAZOLIN [Suspect]
     Indication: PROPHYLAXIS
     Dosage: 500 MG 2 TIMES PER DAY IV DAYS INTRAVENOUS DRIP
     Route: 041
     Dates: start: 20051019, end: 20051020

REACTIONS (3)
  - BLOOD PRESSURE DECREASED [None]
  - HEART RATE INCREASED [None]
  - PYREXIA [None]
